FAERS Safety Report 5511284-0 (Version None)
Quarter: 2007Q4

REPORT INFORMATION
  Report Type: 
  Country: None (occurrence: None)
  Receive Date: 20071109
  Receipt Date: 20070807
  Transmission Date: 20080405
  Serious: No
  Sender: FDA-Public Use
  Company Number: A0664345A

PATIENT
  Age: 30 Year
  Sex: Female
  Weight: 70.5 kg

DRUGS (1)
  1. ALTABAX [Suspect]
     Dosage: 1APP TWICE PER DAY
     Route: 061
     Dates: start: 20070701, end: 20070701

REACTIONS (2)
  - APPLICATION SITE IRRITATION [None]
  - HYPERSENSITIVITY [None]
